FAERS Safety Report 25899871 (Version 2)
Quarter: 2025Q4

REPORT INFORMATION
  Report Type: Report from Study
  Country: US (occurrence: None)
  Receive Date: 20251009
  Receipt Date: 20251120
  Transmission Date: 20260118
  Serious: Yes (Other)
  Sender: UCB
  Company Number: US-UCBSA-2025063304

PATIENT
  Age: 9 Year
  Weight: 39.2 kg

DRUGS (5)
  1. FENFLURAMINE [Suspect]
     Active Substance: FENFLURAMINE
     Indication: Severe myoclonic epilepsy of infancy
     Dosage: 2.5 MILLILITER, 2X/DAY (BID)
  2. FENFLURAMINE [Suspect]
     Active Substance: FENFLURAMINE
     Dosage: 0.28 MILLIGRAM PER KILOGRAM PER DAY/ 11 MILLIGRAM PER DAY
  3. KEPPRA [Concomitant]
     Active Substance: LEVETIRACETAM
     Indication: Epilepsy
     Dosage: 600 MILLIGRAM, 2X/DAY (BID)
  4. CLOBAZAM [Concomitant]
     Active Substance: CLOBAZAM
     Indication: Epilepsy
     Dosage: 7.5 MILLIGRAM, 2X/DAY (BID)
  5. CANNABIDIOL [Concomitant]
     Active Substance: CANNABIDIOL

REACTIONS (1)
  - Tricuspid valve incompetence [Not Recovered/Not Resolved]
